FAERS Safety Report 11420518 (Version 1)
Quarter: 2015Q3

REPORT INFORMATION
  Report Type: Spontaneous
  Country: CH (occurrence: CH)
  Receive Date: 20150826
  Receipt Date: 20150826
  Transmission Date: 20151125
  Serious: Yes (Hospitalization, Other)
  Sender: FDA-Public Use
  Company Number: CH-ELI_LILLY_AND_COMPANY-CH201508005129

PATIENT
  Age: 68 Year
  Sex: Male
  Weight: 101 kg

DRUGS (11)
  1. CYMBALTA [Suspect]
     Active Substance: DULOXETINE HYDROCHLORIDE
     Dosage: 60 MG, EACH MORNING
     Route: 048
     Dates: end: 20150506
  2. TOREM                              /01036501/ [Suspect]
     Active Substance: TORSEMIDE
     Indication: PRODUCT USED FOR UNKNOWN INDICATION
     Dosage: 10 MG, QD
     Route: 048
     Dates: end: 20150521
  3. TIMOGEL [Concomitant]
     Active Substance: TIMOLOL MALEATE
     Indication: GLAUCOMA
     Dosage: 1 GTT, QD
     Route: 047
  4. NOZINAN                            /00038601/ [Suspect]
     Active Substance: LEVOMEPROMAZINE
     Indication: PRODUCT USED FOR UNKNOWN INDICATION
     Dosage: 6.25 MG, QD
     Route: 048
     Dates: end: 20150506
  5. COSOPT S [Concomitant]
     Indication: GLAUCOMA
     Dosage: 1 GTT, BID
     Route: 047
  6. CHELIDONINE [Suspect]
     Active Substance: CHELIDONINE
     Indication: DYSPEPSIA
     Dosage: UNK UNK, UNKNOWN
     Route: 048
     Dates: start: 201504, end: 201505
  7. ALLOPUR [Suspect]
     Active Substance: ALLOPURINOL
     Indication: PRODUCT USED FOR UNKNOWN INDICATION
     Dosage: 150 MG, QD
     Route: 048
     Dates: end: 20150506
  8. METOPROLOL [Suspect]
     Active Substance: METOPROLOL
     Indication: HYPERTENSION
     Dosage: 25 MG, BID
     Route: 048
  9. CYMBALTA [Suspect]
     Active Substance: DULOXETINE HYDROCHLORIDE
     Indication: PRODUCT USED FOR UNKNOWN INDICATION
     Dosage: 30 MG, EACH EVENING
     Route: 048
     Dates: end: 20150506
  10. PANTOZOL [Suspect]
     Active Substance: PANTOPRAZOLE SODIUM
     Indication: PRODUCT USED FOR UNKNOWN INDICATION
     Dosage: 20 MG, QD
     Route: 048
     Dates: end: 20150506
  11. SINTROM [Suspect]
     Active Substance: ACENOCOUMAROL
     Indication: ATRIAL FIBRILLATION
     Dosage: 1 MG, UNK
     Route: 048

REACTIONS (10)
  - Arrhythmia [Unknown]
  - Hepatic steatosis [Recovering/Resolving]
  - Haemodynamic instability [Unknown]
  - Weight decreased [Unknown]
  - Urinary tract infection enterococcal [Unknown]
  - Neoplasm [Unknown]
  - Jaundice cholestatic [Recovering/Resolving]
  - Liver function test abnormal [Recovering/Resolving]
  - Hepatic cirrhosis [Recovering/Resolving]
  - Drug-induced liver injury [Unknown]

NARRATIVE: CASE EVENT DATE: 20150502
